FAERS Safety Report 7973777-6 (Version None)
Quarter: 2011Q4

REPORT INFORMATION
  Report Type: 
  Country: None (occurrence: None)
  Receive Date: 20111129
  Receipt Date: 20110822
  Transmission Date: 20120403
  Serious: No
  Sender: FDA-Public Use
  Company Number: PHHY2011US09348

PATIENT
  Age: 17 Year
  Sex: Female
  Weight: 89 kg

DRUGS (8)
  1. SABRIL [Concomitant]
  2. TOPAMAX [Concomitant]
  3. KEPPRA [Concomitant]
  4. LEXAPRO [Concomitant]
  5. KLONOPIN [Concomitant]
  6. AFINITOR [Suspect]
     Indication: TUBEROUS SCLEROSIS
     Dosage: 7.5 MG, QD, ORAL
     Route: 048
     Dates: start: 20110131
  7. AFINITOR [Suspect]
     Indication: ASTROCYTOMA
     Dosage: 7.5 MG, QD, ORAL
     Route: 048
     Dates: start: 20110131
  8. PRILOSEC [Concomitant]

REACTIONS (8)
  - MASS [None]
  - ACNE [None]
  - SWELLING FACE [None]
  - POLLAKIURIA [None]
  - STOMATITIS [None]
  - FLUSHING [None]
  - RASH GENERALISED [None]
  - DERMATITIS CONTACT [None]
